FAERS Safety Report 5586766-6 (Version None)
Quarter: 2008Q1

REPORT INFORMATION
  Report Type: 
  Country: None (occurrence: None)
  Receive Date: 20080110
  Receipt Date: 20080107
  Transmission Date: 20080703
  Serious: Yes (Other)
  Sender: FDA-Public Use
  Company Number: GB-JNJFOC-20080101324

PATIENT
  Sex: Female
  Weight: 50 kg

DRUGS (6)
  1. REMICADE [Suspect]
     Indication: RHEUMATOID ARTHRITIS
     Route: 042
  2. ENALAPRIL [Concomitant]
  3. MELOXICAM [Concomitant]
  4. SALAZOPYRIN [Concomitant]
  5. CO-PROXAMOL [Concomitant]
  6. HRT [Concomitant]

REACTIONS (1)
  - ACUTE MYELOID LEUKAEMIA [None]
